FAERS Safety Report 23988717 (Version 1)
Quarter: 2024Q2

REPORT INFORMATION
  Report Type: Spontaneous
  Country: US (occurrence: US)
  Receive Date: 20240619
  Receipt Date: 20240619
  Transmission Date: 20240716
  Serious: Yes (Other)
  Sender: FDA-Public Use
  Company Number: US-TEVA-VS-3209156

PATIENT
  Age: 63 Year
  Sex: Male
  Weight: 81.647 kg

DRUGS (9)
  1. AMLODIPINE BESYLATE [Suspect]
     Active Substance: AMLODIPINE BESYLATE
     Indication: Product used for unknown indication
     Route: 048
  2. AMLODIPINE BESYLATE [Suspect]
     Active Substance: AMLODIPINE BESYLATE
     Indication: Product used for unknown indication
     Dosage: 1/2 TABLET AT BEDTIME
     Route: 048
  3. LISINOPRIL [Concomitant]
     Active Substance: LISINOPRIL
  4. OMEPRAZOLE [Concomitant]
     Active Substance: DONEPEZIL HYDROCHLORIDE\OMEPRAZOLE\OMEPRAZOLE MAGNESIUM
     Indication: Gastrooesophageal reflux disease
  5. CARVEDILOL [Concomitant]
     Active Substance: CARVEDILOL
  6. TORSEMIDE [Concomitant]
     Active Substance: TORSEMIDE
  7. JYNARQUE [Suspect]
     Active Substance: TOLVAPTAN
     Indication: Polycystic liver disease
     Route: 065
     Dates: start: 20240208
  8. JYNARQUE [Suspect]
     Active Substance: TOLVAPTAN
     Indication: Polycystic liver disease
     Route: 065
     Dates: start: 20240308
  9. ROSUVASTATIN CALCIUM [Concomitant]
     Active Substance: ROSUVASTATIN CALCIUM

REACTIONS (12)
  - Hand fracture [Recovered/Resolved]
  - Joint swelling [Unknown]
  - Blood urea increased [Recovering/Resolving]
  - Blood parathyroid hormone increased [Not Recovered/Not Resolved]
  - Urine protein/creatinine ratio increased [Recovering/Resolving]
  - Blood creatinine increased [Recovering/Resolving]
  - Polyuria [Unknown]
  - Blood phosphorus increased [Recovered/Resolved]
  - Blood alkaline phosphatase increased [Unknown]
  - Glomerular filtration rate decreased [Recovering/Resolving]
  - Thirst [Unknown]
  - Fall [Unknown]

NARRATIVE: CASE EVENT DATE: 20240101
